FAERS Safety Report 5094462-7 (Version None)
Quarter: 2006Q3

REPORT INFORMATION
  Report Type: 
  Country: None (occurrence: None)
  Receive Date: 20060731
  Receipt Date: 20060421
  Transmission Date: 20061208
  Serious: No
  Sender: FDA-Public Use
  Company Number: 2006PV012482

PATIENT
  Age: 51 Year
  Sex: Female
  Weight: 90.7194 kg

DRUGS (7)
  1. BYETTA [Suspect]
     Indication: DIABETES MELLITUS NON-INSULIN-DEPENDENT
     Dosage: 10 MCG; BID; SC; SEE IMAGE
     Route: 058
     Dates: start: 20060110, end: 20060208
  2. BYETTA [Suspect]
     Indication: DIABETES MELLITUS NON-INSULIN-DEPENDENT
     Dosage: 10 MCG; BID; SC; SEE IMAGE
     Route: 058
     Dates: start: 20060418
  3. BYETTA [Suspect]
     Dosage: 10 MCG; BID; SC
     Route: 058
     Dates: start: 20060209, end: 20060410
  4. GLUCOPHAGE [Concomitant]
  5. TRICOR [Concomitant]
  6. LISINOPRIL [Concomitant]
  7. LEVOXYL [Concomitant]

REACTIONS (4)
  - DECREASED APPETITE [None]
  - EAR PRURITUS [None]
  - RASH PRURITIC [None]
  - WEIGHT DECREASED [None]
